FAERS Safety Report 25298303 (Version 1)
Quarter: 2025Q2

REPORT INFORMATION
  Report Type: Spontaneous
  Country: IN (occurrence: IN)
  Receive Date: 20250512
  Receipt Date: 20250512
  Transmission Date: 20250717
  Serious: Yes (Other)
  Sender: SHILPA MEDICARE
  Company Number: IN-KOANAAP-SML-IN-2025-00245

PATIENT
  Age: 36 Year
  Sex: Female

DRUGS (2)
  1. CAPECITABINE [Suspect]
     Active Substance: CAPECITABINE
     Indication: Breast cancer stage IV
     Dosage: TWICE DAILY FOR 2 WEEKS FOLLOWED BY A ONE WEEK REST PERIOD IN 3 3-WEEK CYCLES
     Route: 048
  2. ANASTROZOLE [Suspect]
     Active Substance: ANASTROZOLE
     Indication: Breast cancer stage IV

REACTIONS (2)
  - Subacute cutaneous lupus erythematosus [Recovering/Resolving]
  - Thrombocytopenia [Unknown]
